FAERS Safety Report 21886261 (Version 1)
Quarter: 2023Q1

REPORT INFORMATION
  Report Type: Spontaneous
  Country: HR (occurrence: None)
  Receive Date: 20230119
  Receipt Date: 20230119
  Transmission Date: 20230417
  Serious: Yes (Hospitalization)
  Sender: FDA-Public Use
  Company Number: 2023A010003

PATIENT
  Age: 40 Year
  Sex: Female
  Weight: 139 kg

DRUGS (1)
  1. DAPAGLIFLOZIN [Suspect]
     Active Substance: DAPAGLIFLOZIN
     Indication: EGFR status assay
     Route: 048

REACTIONS (1)
  - Pancreatitis [Recovered/Resolved]
